FAERS Safety Report 6569693-7 (Version None)
Quarter: 2010Q1

REPORT INFORMATION
  Report Type: 
  Country: None (occurrence: None)
  Receive Date: 20100204
  Receipt Date: 20100125
  Transmission Date: 20100710
  Serious: Yes (Other)
  Sender: FDA-Public Use
  Company Number: PHHY2009PL12071

PATIENT
  Age: 39 Year
  Sex: Male

DRUGS (5)
  1. CERTICAN [Suspect]
     Indication: RENAL TRANSPLANT
     Dosage: 2 MG, BID
  2. CYCLOSPORINE [Concomitant]
     Indication: RENAL TRANSPLANT
  3. PREDNISONE [Concomitant]
     Indication: RENAL TRANSPLANT
     Dosage: UNK
  4. MYCOPHENOLATE MOFETIL [Concomitant]
     Dosage: UNK
  5. LOSARTAN POTASSIUM [Concomitant]
     Dosage: UNK

REACTIONS (8)
  - BLOOD CREATININE INCREASED [None]
  - COMPLEMENT FACTOR C3 DECREASED [None]
  - GLOMERULONEPHRITIS [None]
  - HAEMATURIA [None]
  - LEUKOCYTURIA [None]
  - PROTEINURIA [None]
  - RASH [None]
  - RENAL NECROSIS [None]
